FAERS Safety Report 6682886-3 (Version None)
Quarter: 2010Q2

REPORT INFORMATION
  Report Type: 
  Country: None (occurrence: None)
  Receive Date: 20100415
  Receipt Date: 20100412
  Transmission Date: 20101027
  Serious: Yes (Other)
  Sender: FDA-Public Use
  Company Number: A0854886A

PATIENT
  Age: 61 Year
  Sex: Male

DRUGS (4)
  1. MELPHALAN HYDROCHLORIDE [Suspect]
     Indication: MULTIPLE MYELOMA
     Dates: start: 20100211, end: 20100225
  2. BORTEZOMIB [Suspect]
     Indication: MULTIPLE MYELOMA
     Dates: start: 20100211, end: 20100225
  3. DEXAMETHASONE [Suspect]
     Indication: MULTIPLE MYELOMA
     Dates: start: 20100211, end: 20100225
  4. THALIDOMIDE [Suspect]
     Indication: MULTIPLE MYELOMA
     Dates: start: 20100211, end: 20100225

REACTIONS (1)
  - HYPOPHOSPHATAEMIA [None]
